FAERS Safety Report 20769858 (Version 1)
Quarter: 2022Q2

REPORT INFORMATION
  Report Type: Report from Study
  Country: CN (occurrence: CN)
  Receive Date: 20220429
  Receipt Date: 20220429
  Transmission Date: 20220721
  Serious: Yes (Hospitalization)
  Sender: FDA-Public Use
  Company Number: CN-BAYER-2022A062498

PATIENT
  Sex: Male

DRUGS (1)
  1. STIVARGA [Suspect]
     Active Substance: REGORAFENIB
     Indication: Hepatocellular carcinoma
     Dosage: 80 MG, QD
     Route: 048
     Dates: start: 20220325, end: 2022

REACTIONS (2)
  - Hospitalisation [Unknown]
  - Off label use [None]

NARRATIVE: CASE EVENT DATE: 20220101
